FAERS Safety Report 15771947 (Version 1)
Quarter: 2018Q4

REPORT INFORMATION
  Report Type: Report from Study
  Country: US (occurrence: US)
  Receive Date: 20181228
  Receipt Date: 20181228
  Transmission Date: 20190205
  Serious: Yes (Hospitalization)
  Sender: FDA-Public Use
  Company Number: US-OTSUKA-2018_039981

PATIENT
  Age: 33 Year
  Sex: Female

DRUGS (2)
  1. IBUPROFEN. [Concomitant]
     Active Substance: IBUPROFEN
     Indication: PRODUCT USED FOR UNKNOWN INDICATION
     Dosage: UNK
     Route: 065
  2. TOLVAPTAN [Suspect]
     Active Substance: TOLVAPTAN
     Indication: PARKINSON^S DISEASE
     Dosage: 15 MG, UNK
     Route: 048
     Dates: start: 20181129

REACTIONS (6)
  - Thirst [Unknown]
  - Product use in unapproved indication [Unknown]
  - Polyuria [Unknown]
  - Blood sodium decreased [Recovering/Resolving]
  - Poor quality sleep [Unknown]
  - Respiratory tract infection [Unknown]

NARRATIVE: CASE EVENT DATE: 20181129
